FAERS Safety Report 6445616-6 (Version None)
Quarter: 2009Q4

REPORT INFORMATION
  Report Type: 
  Country: None (occurrence: None)
  Receive Date: 20091118
  Receipt Date: 20091118
  Transmission Date: 20100525
  Serious: Yes (Hospitalization)
  Sender: FDA-Public Use
  Company Number: None

PATIENT
  Age: 68 Year
  Sex: Female
  Weight: 76 kg

DRUGS (4)
  1. VENOFER [Suspect]
     Indication: ANAEMIA
     Dosage: 500MG IV ONCE
     Route: 042
     Dates: start: 20091111
  2. SOLU-MEDROL [Concomitant]
  3. ZANTAC [Concomitant]
  4. BENADRYL [Concomitant]

REACTIONS (1)
  - ANAPHYLACTIC REACTION [None]
